FAERS Safety Report 6647364-6 (Version None)
Quarter: 2010Q1

REPORT INFORMATION
  Report Type: 
  Country: None (occurrence: None)
  Receive Date: 20100323
  Receipt Date: 20100315
  Transmission Date: 20100710
  Serious: Yes (Death, Hospitalization, Other)
  Sender: FDA-Public Use
  Company Number: FI-ABBOTT-10P-055-0621807-00

PATIENT
  Sex: Female
  Weight: 50 kg

DRUGS (7)
  1. HUMIRA [Suspect]
     Indication: COLITIS ULCERATIVE
     Dates: start: 20071114, end: 20071114
  2. HUMIRA [Suspect]
     Dates: start: 20071101, end: 20071101
  3. HUMIRA [Suspect]
     Dates: start: 20071201, end: 20081112
  4. HUMIRA [Suspect]
     Dates: start: 20081112, end: 20091213
  5. CALCIPOS D [Concomitant]
     Indication: DRUG USE FOR UNKNOWN INDICATION
     Dosage: 1X2
  6. BEROCCA C [Concomitant]
     Indication: DRUG USE FOR UNKNOWN INDICATION
     Dosage: 1X1
  7. ENTOCORT EC [Concomitant]
     Indication: DRUG USE FOR UNKNOWN INDICATION
     Dosage: 1X1

REACTIONS (2)
  - BRAIN DEATH [None]
  - MENINGITIS [None]
